FAERS Safety Report 18537601 (Version 1)
Quarter: 2020Q4

REPORT INFORMATION
  Report Type: Spontaneous
  Country: US (occurrence: US)
  Receive Date: 20201123
  Receipt Date: 20201123
  Transmission Date: 20210114
  Serious: No
  Sender: FDA-Public Use
  Company Number: US-PERRIGO-20US013394

PATIENT
  Age: 71 Year
  Sex: Male
  Weight: 76.19 kg

DRUGS (6)
  1. ROSUVASTATIN. [Concomitant]
     Active Substance: ROSUVASTATIN
     Indication: BLOOD CHOLESTEROL ABNORMAL
     Dosage: UNK
     Route: 065
     Dates: start: 2013
  2. TRAMADOL. [Concomitant]
     Active Substance: TRAMADOL
     Indication: RIB FRACTURE
     Dosage: UNK
     Route: 065
     Dates: start: 2012
  3. ATENOLOL + CLORTALIDONA [Concomitant]
     Indication: HYPERTENSION
     Dosage: UNK
     Route: 065
     Dates: start: 202002
  4. OMEPRAZOLE                         /00661202/ [Concomitant]
     Active Substance: OMEPRAZOLE SODIUM
     Indication: GASTROOESOPHAGEAL REFLUX DISEASE
     Dosage: UNK
     Route: 065
     Dates: start: 2019
  5. NAPROXEN. [Concomitant]
     Active Substance: NAPROXEN
     Indication: LIMB INJURY
     Dosage: UNK
     Route: 065
  6. POLYETHYLENE GLYCOL 3350. [Suspect]
     Active Substance: POLYETHYLENE GLYCOL 3350
     Indication: CONSTIPATION
     Dosage: SLIGHTLY MORE THAN 17 G, 1 TO 2 TIMES DAILY
     Route: 048
     Dates: start: 20200909

REACTIONS (3)
  - Inappropriate schedule of product administration [Unknown]
  - Therapeutic product effect variable [Unknown]
  - Incorrect dose administered [Not Recovered/Not Resolved]

NARRATIVE: CASE EVENT DATE: 20200909
